FAERS Safety Report 16065294 (Version 1)
Quarter: 2019Q1

REPORT INFORMATION
  Report Type: Report from Study
  Country: AT (occurrence: AT)
  Receive Date: 20190313
  Receipt Date: 20190313
  Transmission Date: 20190418
  Serious: Yes (Death)
  Sender: FDA-Public Use
  Company Number: AT-ACCORD-111967

PATIENT
  Sex: Male

DRUGS (2)
  1. BENDAMUSTINE/BENDAMUSTINE HYDROCHLORIDE [Suspect]
     Active Substance: BENDAMUSTINE HYDROCHLORIDE
     Indication: CHRONIC LYMPHOCYTIC LEUKAEMIA
     Dosage: 90 MG/M 2 BODY SURFACE AREA AT DAYS 1 AND 2, INTERVAL FOR EACH CYCLE WAS 28 DAYS
     Route: 042
  2. OBINUTUZUMAB. [Suspect]
     Active Substance: OBINUTUZUMAB
     Indication: CHRONIC LYMPHOCYTIC LEUKAEMIA
     Dosage: DURING THE FIRST CYCLE: 1000 MG AT DAYS 8 AND 15; INTERVAL FOR EACH CYCLE WAS 28 DAYS
     Route: 042

REACTIONS (1)
  - Pneumonia [Fatal]
